FAERS Safety Report 18246283 (Version 4)
Quarter: 2020Q4

REPORT INFORMATION
  Report Type: Spontaneous
  Country: FI (occurrence: FI)
  Receive Date: 20200909
  Receipt Date: 20201118
  Transmission Date: 20210113
  Serious: Yes (Other)
  Sender: FDA-Public Use
  Company Number: FI-ASTELLAS-2020US030737

PATIENT
  Age: 59 Year
  Sex: Female

DRUGS (4)
  1. THYROXIN [Concomitant]
     Active Substance: LEVOTHYROXINE
     Indication: PRODUCT USED FOR UNKNOWN INDICATION
     Dosage: 0.1 MG, ONCE DAILY (SINCE 30 YEARS CONTINUOUSLY)
     Route: 065
     Dates: start: 1990
  2. BETMIGA [Suspect]
     Active Substance: MIRABEGRON
     Indication: URGE INCONTINENCE
     Route: 048
     Dates: start: 20191015, end: 20200815
  3. CANDESARTAN. [Concomitant]
     Active Substance: CANDESARTAN
     Indication: PRODUCT USED FOR UNKNOWN INDICATION
     Route: 065
     Dates: start: 2014
  4. PROGYNOVA [ESTRADIOL] [Concomitant]
     Indication: MENOPAUSAL SYMPTOMS
     Route: 065
     Dates: start: 2014

REACTIONS (4)
  - Muscle twitching [Not Recovered/Not Resolved]
  - Viral infection [Unknown]
  - Glucose tolerance impaired [Not Recovered/Not Resolved]
  - Neuropathy peripheral [Not Recovered/Not Resolved]

NARRATIVE: CASE EVENT DATE: 20200315
